FAERS Safety Report 20966504 (Version 1)
Quarter: 2022Q2

REPORT INFORMATION
  Report Type: Spontaneous
  Country: US (occurrence: None)
  Receive Date: 20220615
  Receipt Date: 20220615
  Transmission Date: 20220721
  Serious: Yes (Other)
  Sender: FDA-Public Use
  Company Number: None

PATIENT
  Sex: Female

DRUGS (1)
  1. PRALUENT [Suspect]
     Active Substance: ALIROCUMAB
     Dosage: OTHER FREQUENCY : Q14 DAYS;?
     Route: 058
     Dates: start: 20200730

REACTIONS (2)
  - Gastric cancer [None]
  - Neoplasm malignant [None]
